FAERS Safety Report 4896534-6 (Version None)
Quarter: 2006Q1

REPORT INFORMATION
  Report Type: 
  Country: None (occurrence: None)
  Receive Date: 20060131
  Receipt Date: 20060126
  Transmission Date: 20060701
  Serious: Yes (Death)
  Sender: FDA-Public Use
  Company Number: 6019903

PATIENT
  Age: 55 Year
  Sex: Male
  Weight: 86.3 kg

DRUGS (4)
  1. AVANDIA [Suspect]
     Dosage: 4MG PER DAY
     Route: 048
     Dates: start: 20030912
  2. GLUCOPHAGE XR [Suspect]
     Dosage: 500MG FOUR TIMES PER DAY
     Route: 048
     Dates: start: 20050401
  3. ENALAPRIL [Concomitant]
     Dosage: 20MG PER DAY
     Route: 048
     Dates: start: 20010904
  4. BENDROFLUAZIDE [Concomitant]
     Dosage: 2.5MG PER DAY
     Route: 048
     Dates: start: 20010904

REACTIONS (1)
  - MYOCARDIAL INFARCTION [None]
